FAERS Safety Report 22384789 (Version 1)
Quarter: 2023Q2

REPORT INFORMATION
  Report Type: Report from Study
  Country: ES (occurrence: ES)
  Receive Date: 20230530
  Receipt Date: 20230530
  Transmission Date: 20230721
  Serious: Yes (Hospitalization)
  Sender: FDA-Public Use
  Company Number: ES-TAKEDA-2023TUS052712

PATIENT
  Age: 7 Year
  Sex: Male

DRUGS (16)
  1. TEDUGLUTIDE [Suspect]
     Active Substance: TEDUGLUTIDE
     Indication: Short-bowel syndrome
     Dosage: 0.8 MILLIGRAM, QD
     Route: 042
     Dates: start: 20190828, end: 20211008
  2. TEDUGLUTIDE [Suspect]
     Active Substance: TEDUGLUTIDE
     Indication: Short-bowel syndrome
     Dosage: 0.8 MILLIGRAM, QD
     Route: 042
     Dates: start: 20190828, end: 20211008
  3. TEDUGLUTIDE [Suspect]
     Active Substance: TEDUGLUTIDE
     Indication: Short-bowel syndrome
     Dosage: 0.8 MILLIGRAM, QD
     Route: 042
     Dates: start: 20190828, end: 20211008
  4. TEDUGLUTIDE [Suspect]
     Active Substance: TEDUGLUTIDE
     Indication: Short-bowel syndrome
     Dosage: 0.8 MILLIGRAM, QD
     Route: 042
     Dates: start: 20190828, end: 20211008
  5. TEDUGLUTIDE [Suspect]
     Active Substance: TEDUGLUTIDE
     Dosage: 0.9 MILLIGRAM, QD
     Route: 042
     Dates: start: 20211008, end: 20220330
  6. TEDUGLUTIDE [Suspect]
     Active Substance: TEDUGLUTIDE
     Dosage: 0.9 MILLIGRAM, QD
     Route: 042
     Dates: start: 20211008, end: 20220330
  7. TEDUGLUTIDE [Suspect]
     Active Substance: TEDUGLUTIDE
     Dosage: 0.9 MILLIGRAM, QD
     Route: 042
     Dates: start: 20211008, end: 20220330
  8. TEDUGLUTIDE [Suspect]
     Active Substance: TEDUGLUTIDE
     Dosage: 0.9 MILLIGRAM, QD
     Route: 042
     Dates: start: 20211008, end: 20220330
  9. TEDUGLUTIDE [Suspect]
     Active Substance: TEDUGLUTIDE
     Dosage: 1 MILLIGRAM, QD
     Route: 042
     Dates: start: 20220530
  10. TEDUGLUTIDE [Suspect]
     Active Substance: TEDUGLUTIDE
     Dosage: 1 MILLIGRAM, QD
     Route: 042
     Dates: start: 20220530
  11. TEDUGLUTIDE [Suspect]
     Active Substance: TEDUGLUTIDE
     Dosage: 1 MILLIGRAM, QD
     Route: 042
     Dates: start: 20220530
  12. TEDUGLUTIDE [Suspect]
     Active Substance: TEDUGLUTIDE
     Dosage: 1 MILLIGRAM, QD
     Route: 042
     Dates: start: 20220530
  13. CALCIFEDIOL [Concomitant]
     Active Substance: CALCIFEDIOL
     Indication: Hypovitaminosis
     Dosage: 266 MICROGRAM, 2/MONTH
     Route: 048
     Dates: start: 20221104, end: 20230206
  14. CALCIFEDIOL [Concomitant]
     Active Substance: CALCIFEDIOL
     Dosage: 266 MICROGRAM, 1/WEEK
     Route: 048
     Dates: start: 20230206
  15. HIBOR [Concomitant]
     Indication: Prophylaxis
     Dosage: 250 INTERNATIONAL UNIT, QD
     Route: 058
     Dates: start: 20230206
  16. VENOFER [Concomitant]
     Active Substance: IRON SUCROSE
     Indication: Iron deficiency
     Dosage: 200 MICROGRAM
     Route: 042
     Dates: start: 20220328

REACTIONS (1)
  - Bronchospasm [Recovered/Resolved]

NARRATIVE: CASE EVENT DATE: 20230315
